FAERS Safety Report 9679056 (Version 2)
Quarter: 2013Q4

REPORT INFORMATION
  Report Type: Report from Study
  Country: DE (occurrence: DE)
  Receive Date: 20131108
  Receipt Date: 20131108
  Transmission Date: 20140711
  Serious: Yes (Hospitalization, Other)
  Sender: FDA-Public Use
  Company Number: DE-VERTEX PHARMACEUTICALS INC-000000000000000682

PATIENT
  Age: 46 Year
  Sex: Male
  Weight: 99.1 kg

DRUGS (6)
  1. VX-950 (TELAPREVIR) [Suspect]
     Indication: HEPATITIS C
     Dosage: DOSAGE FORM: TABLET
     Route: 048
     Dates: start: 20120217, end: 20120505
  2. PEGINTERFERON ALFA-2A [Suspect]
     Indication: HEPATITIS C
     Dosage: 150 ?G, QW
     Route: 058
     Dates: start: 20120217
  3. RIBAVIRIN [Suspect]
     Indication: HEPATITIS C
     Dosage: 1400 MG, UNK
     Route: 048
     Dates: start: 20120217
  4. LINOLA FETT [Concomitant]
     Dosage: UNK
     Dates: start: 20120316
  5. CETIRIZIN [Concomitant]
     Dosage: UNK
     Dates: start: 20120417
  6. DERMATOP [Concomitant]
     Dosage: UNK
     Dates: start: 20120417

REACTIONS (1)
  - Rash [Recovered/Resolved]
